FAERS Safety Report 4537493-5 (Version None)
Quarter: 2004Q4

REPORT INFORMATION
  Report Type: 
  Country: None (occurrence: None)
  Receive Date: 20041221
  Receipt Date: 20041115
  Transmission Date: 20050328
  Serious: No
  Sender: FDA-Public Use
  Company Number: A-US2004-08106

PATIENT
  Age: 54 Year
  Sex: Female

DRUGS (6)
  1. TRACLEER [Suspect]
     Indication: PULMONARY HYPERTENSION
     Dosage: 125 MG, BID, ORAL
     Route: 048
     Dates: start: 20031101
  2. PROCARDIA [Concomitant]
  3. PREDNISONE [Concomitant]
  4. IMURAN [Concomitant]
  5. ZELNORM [Concomitant]
  6. NEXIUM [Concomitant]

REACTIONS (1)
  - RAYNAUD'S PHENOMENON [None]
